FAERS Safety Report 6980883-1 (Version None)
Quarter: 2010Q3

REPORT INFORMATION
  Report Type: 
  Country: None (occurrence: None)
  Receive Date: 20100914
  Receipt Date: 20100903
  Transmission Date: 20110219
  Serious: Yes (Hospitalization)
  Sender: FDA-Public Use
  Company Number: A0790521A

PATIENT
  Age: 34 Year
  Sex: Female

DRUGS (1)
  1. AVANDIA [Suspect]
     Indication: DIABETES MELLITUS
     Dosage: 8MG TWICE PER DAY
     Route: 048
     Dates: start: 20000101, end: 20080701

REACTIONS (10)
  - CARDIAC DISORDER [None]
  - CARDIAC FAILURE CONGESTIVE [None]
  - CEREBROVASCULAR ACCIDENT [None]
  - DYSPNOEA [None]
  - HEART INJURY [None]
  - HEPATIC FAILURE [None]
  - IMPLANTABLE DEFIBRILLATOR INSERTION [None]
  - LIVER INJURY [None]
  - MULTIPLE INJURIES [None]
  - PAIN [None]
